FAERS Safety Report 9652465 (Version 1)
Quarter: 2013Q4

REPORT INFORMATION
  Report Type: Spontaneous
  Country: FR (occurrence: FR)
  Receive Date: 20131029
  Receipt Date: 20131029
  Transmission Date: 20140711
  Serious: Yes (Death)
  Sender: FDA-Public Use
  Company Number: FR-PFIZER INC-2013305872

PATIENT
  Age: 47 Year
  Sex: Female

DRUGS (3)
  1. FLUOROURACILE PFIZER [Suspect]
     Indication: INVASIVE DUCTAL BREAST CARCINOMA
     Dosage: 850 MG, SINGLE DOSE
     Route: 041
     Dates: start: 20130923, end: 20130923
  2. SOLU-MEDROL [Suspect]
     Indication: PREMEDICATION
     Dosage: 60 MG, SINGLE
     Route: 041
     Dates: start: 20130923, end: 20130923
  3. GRANISETRON B BRAUN 3 MG/ 3 ML [Suspect]
     Indication: PROPHYLAXIS OF NAUSEA AND VOMITING
     Dosage: 3 MG, SINGLE
     Route: 041
     Dates: start: 20130923, end: 20130923

REACTIONS (3)
  - Cardio-respiratory arrest [Fatal]
  - Convulsion [Fatal]
  - Malaise [Fatal]
